FAERS Safety Report 16784012 (Version 2)
Quarter: 2019Q3

REPORT INFORMATION
  Report Type: Spontaneous
  Country: TN (occurrence: TN)
  Receive Date: 20190909
  Receipt Date: 20190927
  Transmission Date: 20191005
  Serious: Yes (Other)
  Sender: FDA-Public Use
  Company Number: TN-LUPIN PHARMACEUTICALS INC.-2019-05698

PATIENT
  Age: 32 Year
  Sex: Female

DRUGS (1)
  1. CELECOXIB CAPSULES 200 MG [Suspect]
     Active Substance: CELECOXIB
     Indication: DYSMENORRHOEA
     Dosage: 200 MILLIGRAM, BID
     Route: 048

REACTIONS (3)
  - Type IV hypersensitivity reaction [Recovered/Resolved with Sequelae]
  - Fixed eruption [Recovered/Resolved with Sequelae]
  - Dermatitis bullous [Recovered/Resolved with Sequelae]
